FAERS Safety Report 15043857 (Version 1)
Quarter: 2018Q2

REPORT INFORMATION
  Report Type: Report from Study
  Country: US (occurrence: US)
  Receive Date: 20180621
  Receipt Date: 20180621
  Transmission Date: 20180711
  Serious: Yes (Hospitalization, Other)
  Sender: FDA-Public Use
  Company Number: US-UCBSA-2017003489

PATIENT
  Age: 56 Year
  Sex: Female

DRUGS (2)
  1. BRIVARACETAM [Suspect]
     Active Substance: BRIVARACETAM
     Indication: EPILEPSY
  2. BRIVARACETAM [Suspect]
     Active Substance: BRIVARACETAM
     Indication: PARTIAL SEIZURES
     Dosage: 150 MG, 2X/DAY (BID)

REACTIONS (4)
  - Off label use [Unknown]
  - Brain operation [Unknown]
  - Overdose [Unknown]
  - Seizure [Unknown]

NARRATIVE: CASE EVENT DATE: 20171210
